FAERS Safety Report 9280199 (Version 1)
Quarter: 2013Q2

REPORT INFORMATION
  Report Type: Spontaneous
  Country: US (occurrence: None)
  Receive Date: 20130507
  Receipt Date: 20130507
  Transmission Date: 20140414
  Serious: Yes (Life-Threatening, Hospitalization, Disabling)
  Sender: FDA-Public Use
  Company Number: None

PATIENT
  Age: 80 Year
  Sex: Female
  Weight: 49.9 kg

DRUGS (1)
  1. LYRICA [Suspect]
     Indication: NEURALGIA
     Dosage: 1 PILL SAMPLE
     Dates: start: 20120329

REACTIONS (7)
  - Tinnitus [None]
  - Speech disorder [None]
  - Tongue paralysis [None]
  - Swollen tongue [None]
  - Dysphagia [None]
  - Nerve injury [None]
  - Muscle injury [None]
